FAERS Safety Report 11971809 (Version 3)
Quarter: 2016Q1

REPORT INFORMATION
  Report Type: Report from Study
  Country: US (occurrence: US)
  Receive Date: 20160128
  Receipt Date: 20160303
  Transmission Date: 20160526
  Serious: Yes (Other)
  Sender: FDA-Public Use
  Company Number: US-MEDTRONIC-1047031

PATIENT
  Age: 48 Year
  Sex: Female

DRUGS (1)
  1. BACLOFEN. [Suspect]
     Active Substance: BACLOFEN
     Indication: PAIN
     Route: 037

REACTIONS (3)
  - Cerebrospinal fluid leakage [Recovered/Resolved with Sequelae]
  - Medical device site fibrosis [Recovered/Resolved with Sequelae]
  - No therapeutic response [Recovered/Resolved with Sequelae]
